FAERS Safety Report 6245516-0 (Version None)
Quarter: 2009Q2

REPORT INFORMATION
  Report Type: 
  Country: None (occurrence: None)
  Receive Date: 20090625
  Receipt Date: 20090616
  Transmission Date: 20091009
  Serious: Yes (Death, Life-Threatening, Hospitalization, Other)
  Sender: FDA-Public Use
  Company Number: FR-BAXTER-2009BH010306

PATIENT
  Age: 70 Year
  Sex: Female

DRUGS (8)
  1. ENDOXAN BAXTER [Suspect]
     Indication: BURKITT'S LYMPHOMA
     Route: 042
     Dates: start: 20090611, end: 20090613
  2. PREDNISOLONE [Suspect]
     Indication: BURKITT'S LYMPHOMA
     Route: 048
     Dates: start: 20090610, end: 20090614
  3. MABTHERA [Suspect]
     Indication: BURKITT'S LYMPHOMA
     Route: 042
     Dates: start: 20090609, end: 20090609
  4. ONCOVIN [Suspect]
     Indication: BURKITT'S LYMPHOMA
     Route: 042
     Dates: start: 20090610, end: 20090610
  5. METHOTREXATE SODIUM [Suspect]
     Indication: BURKITT'S LYMPHOMA
     Route: 042
     Dates: start: 20090610, end: 20090610
  6. METHOTREXATE SODIUM [Suspect]
     Route: 065
     Dates: start: 20090611, end: 20090611
  7. METHOTREXATE [Suspect]
     Route: 065
     Dates: start: 20090615, end: 20090615
  8. DOXORUBICIN HYDROCHLORIDE [Suspect]
     Indication: BURKITT'S LYMPHOMA
     Route: 042
     Dates: start: 20090611, end: 20090611

REACTIONS (7)
  - ACUTE RESPIRATORY DISTRESS SYNDROME [None]
  - CELLULITIS [None]
  - DEATH [None]
  - FEBRILE BONE MARROW APLASIA [None]
  - LUNG DISORDER [None]
  - MOUTH ULCERATION [None]
  - SEPSIS [None]
